FAERS Safety Report 14902692 (Version 1)
Quarter: 2018Q2

REPORT INFORMATION
  Report Type: Spontaneous
  Country: US (occurrence: US)
  Receive Date: 20180516
  Receipt Date: 20180516
  Transmission Date: 20180711
  Serious: No
  Sender: FDA-Public Use
  Company Number: US-SA-2017SA089364

PATIENT
  Age: 64 Year
  Sex: Female
  Weight: 86.18 kg

DRUGS (1)
  1. LANTUS [Suspect]
     Active Substance: INSULIN GLARGINE
     Indication: TYPE 1 DIABETES MELLITUS
     Route: 051

REACTIONS (3)
  - Rash [Unknown]
  - Pruritus [Unknown]
  - Glycosylated haemoglobin increased [Unknown]
